FAERS Safety Report 5163199-8 (Version None)
Quarter: 2006Q4

REPORT INFORMATION
  Report Type: 
  Country: None (occurrence: None)
  Receive Date: 20061204
  Receipt Date: 20061129
  Transmission Date: 20070319
  Serious: Yes (Hospitalization)
  Sender: FDA-Public Use
  Company Number: FR-ELI_LILLY_AND_COMPANY-FR200611005172

PATIENT
  Age: 60 Year
  Sex: Male

DRUGS (5)
  1. ZYPREXA [Suspect]
     Indication: PSYCHOTIC DISORDER
     Dosage: 10 MG, DAILY (1/D)
     Route: 048
     Dates: end: 20060905
  2. DEPAMIDE [Concomitant]
     Indication: PSYCHOTIC DISORDER
     Dosage: 300 MG, UNKNOWN
     Route: 048
     Dates: end: 20060905
  3. LOXAPAC [Concomitant]
     Indication: PSYCHOTIC DISORDER
     Dosage: 100 MG, 3/D
     Route: 048
     Dates: end: 20060905
  4. RIVOTRIL                                /NOR/ [Concomitant]
     Indication: PSYCHOTIC DISORDER
     Dosage: 2 MG, 4/D
     Route: 048
  5. FORLAX [Concomitant]
     Indication: CONSTIPATION
     Dosage: UNK, UNKNOWN
     Route: 065
     Dates: start: 20060501, end: 20060907

REACTIONS (3)
  - CYTOLYTIC HEPATITIS [None]
  - INFECTION [None]
  - RHABDOMYOLYSIS [None]
